FAERS Safety Report 4400759-3 (Version None)
Quarter: 2004Q3

REPORT INFORMATION
  Report Type: 
  Country: None (occurrence: None)
  Receive Date: 20040907
  Receipt Date: 20020806
  Transmission Date: 20050211
  Serious: No
  Sender: FDA-Public Use
  Company Number: US-BRISTOL-MYERS SQUIBB COMPANY-11984077

PATIENT
  Age: 64 Year
  Sex: Male

DRUGS (6)
  1. COUMADIN [Suspect]
     Indication: ATRIAL FIBRILLATION
     Route: 048
  2. COENZYME Q10 [Suspect]
     Dates: start: 20021013
  3. ALTACE [Concomitant]
  4. TOPROL-XL [Concomitant]
  5. ZOCOR [Concomitant]
  6. AMIODARONE HCL [Concomitant]

REACTIONS (2)
  - INTERNATIONAL NORMALISED RATIO ABNORMAL [None]
  - PROTHROMBIN TIME ABNORMAL [None]
